FAERS Safety Report 15489121 (Version 6)
Quarter: 2018Q4

REPORT INFORMATION
  Report Type: Report from Study
  Country: MY (occurrence: MY)
  Receive Date: 20181011
  Receipt Date: 20181221
  Transmission Date: 20190205
  Serious: Yes (Death, Life-Threatening, Hospitalization)
  Sender: FDA-Public Use
  Company Number: MY-REGENERON PHARMACEUTICALS, INC.-2018-29916

PATIENT

DRUGS (19)
  1. IPRATROPIUM BROMIDE W/SALBUTAMOL [Concomitant]
     Active Substance: ALBUTEROL\IPRATROPIUM BROMIDE
     Indication: PROPHYLAXIS AGAINST BRONCHOSPASM
     Dosage: 1 INHALATION, STAT
     Route: 055
     Dates: start: 20180614, end: 20180614
  2. LEVOFLOXACIN. [Concomitant]
     Active Substance: LEVOFLOXACIN
     Dosage: 500 MG, QD
     Route: 048
     Dates: start: 20180622, end: 20180628
  3. MULTIVITAMIN                       /00097801/ [Concomitant]
     Active Substance: VITAMINS
     Indication: SUPPLEMENTATION THERAPY
     Dosage: 1 DF (TABLET), QD
     Route: 048
     Dates: start: 20180628
  4. TRAMADOL. [Concomitant]
     Active Substance: TRAMADOL
     Indication: BACK PAIN
     Dosage: 50 MG, PRN OR TDS
     Route: 048
     Dates: start: 20180713, end: 20180715
  5. CETRAZONE [Concomitant]
     Indication: LOWER RESPIRATORY TRACT INFECTION
     Dosage: 500 MG, BID
     Route: 048
     Dates: start: 20180622
  6. IPRATROPIUM BROMIDE W/SALBUTAMOL [Concomitant]
     Active Substance: ALBUTEROL\IPRATROPIUM BROMIDE
     Indication: ANTASTHMATIC DRUG LEVEL THERAPEUTIC
     Dosage: 1 INHALATION, Q4H PRN
     Route: 055
     Dates: start: 20180614, end: 20180614
  7. IPRATROPIUM BROMIDE W/SALBUTAMOL [Concomitant]
     Active Substance: ALBUTEROL\IPRATROPIUM BROMIDE
     Indication: LOWER RESPIRATORY TRACT INFECTION
     Dosage: 1 INHALATION, Q4H PRN
     Route: 055
     Dates: start: 20180615, end: 20180618
  8. IPRATROPIUM BROMIDE W/SALBUTAMOL [Concomitant]
     Active Substance: ALBUTEROL\IPRATROPIUM BROMIDE
     Dosage: 1 INHALATION, Q8H
     Route: 055
     Dates: start: 20180618, end: 20180621
  9. LEVOFLOXACIN. [Concomitant]
     Active Substance: LEVOFLOXACIN
     Dosage: 500 MG, QD
     Route: 048
     Dates: start: 20180713, end: 20180715
  10. CEFTRIAXON [Concomitant]
     Active Substance: CEFTRIAXONE
     Dosage: 500 MG, BID
     Route: 048
     Dates: start: 20180622, end: 20180628
  11. CELECOXIB. [Concomitant]
     Active Substance: CELECOXIB
     Indication: BACK PAIN
     Dosage: 200 MG, QD
     Route: 048
     Dates: start: 20180713, end: 20180717
  12. CEMIPLIMAB [Suspect]
     Active Substance: CEMIPLIMAB
     Indication: LUNG ADENOCARCINOMA
     Dosage: 350 MG, EVERY 3 WEEKS
     Route: 042
     Dates: start: 20180608, end: 20180628
  13. CEFTRIAXON [Concomitant]
     Active Substance: CEFTRIAXONE
     Indication: LOWER RESPIRATORY TRACT INFECTION
     Dosage: 2 G, QD
     Route: 042
     Dates: start: 20180617, end: 20180621
  14. DICLOFAM                           /00372303/ [Concomitant]
     Indication: BACK PAIN
     Dosage: UNK
     Route: 061
     Dates: start: 20180613
  15. CELEBREX [Concomitant]
     Active Substance: CELECOXIB
     Indication: BACK PAIN
     Dosage: 200 MG, QD
     Route: 048
     Dates: start: 20180713, end: 20180717
  16. DICLOFENAC [Concomitant]
     Active Substance: DICLOFENAC
     Indication: BACK PAIN
     Dosage: 1 %, UNK
     Route: 061
     Dates: start: 20180713, end: 20180715
  17. LEVOFLOXACIN. [Concomitant]
     Active Substance: LEVOFLOXACIN
     Indication: LOWER RESPIRATORY TRACT INFECTION
     Dosage: 500 MG, QD
     Route: 042
     Dates: start: 20180615, end: 20180621
  18. CEFUROXIME. [Concomitant]
     Active Substance: CEFUROXIME
     Indication: LOWER RESPIRATORY TRACT INFECTION
     Dosage: 500 MG, BID
     Route: 048
     Dates: start: 20180713, end: 20180715
  19. IPRATROPIUM BROMIDE W/SALBUTAMOL [Concomitant]
     Active Substance: ALBUTEROL\IPRATROPIUM BROMIDE
     Dosage: 1 INHALATION, PRN
     Route: 055
     Dates: start: 20180621, end: 20180622

REACTIONS (3)
  - Autoimmune hepatitis [Not Recovered/Not Resolved]
  - Autoimmune myocarditis [Fatal]
  - Pneumonitis [Unknown]

NARRATIVE: CASE EVENT DATE: 20180715
